FAERS Safety Report 10839017 (Version 5)
Quarter: 2023Q4

REPORT INFORMATION
  Report Type: Spontaneous
  Country: GB (occurrence: GB)
  Receive Date: 20150220
  Receipt Date: 20231129
  Transmission Date: 20240110
  Serious: Yes (Death, Hospitalization, Other)
  Sender: FDA-Public Use
  Company Number: GB-AUROBINDO-AUR-APL-2015-01375

PATIENT
  Age: 58 Year
  Sex: Male
  Weight: 100 kg

DRUGS (7)
  1. AMLODIPINE [Suspect]
     Active Substance: AMLODIPINE BESYLATE
     Indication: Hypertension
     Dosage: 5 MG, 1X/DAY
     Route: 048
     Dates: start: 20140922
  2. DOXAZOSIN MESYLATE [Suspect]
     Active Substance: DOXAZOSIN MESYLATE
     Indication: Hypertension
     Dosage: 4 MG, 2X/DAY
     Route: 065
     Dates: start: 2002, end: 2014
  3. DOXAZOSIN MESYLATE [Suspect]
     Active Substance: DOXAZOSIN MESYLATE
     Dosage: 8 MG, TWO TIMES A DAY
     Route: 065
     Dates: start: 2014
  4. LISINOPRIL [Suspect]
     Active Substance: LISINOPRIL
     Indication: Hypertension
     Dosage: 20 MG, 1X/DAY
     Route: 048
     Dates: start: 2002, end: 20141126
  5. BECONASE AQ [Concomitant]
     Active Substance: BECLOMETHASONE DIPROPIONATE MONOHYDRATE
     Indication: Influenza like illness
     Dosage: UNK
     Route: 065
     Dates: start: 201505
  6. BECONASE AQ [Concomitant]
     Active Substance: BECLOMETHASONE DIPROPIONATE MONOHYDRATE
     Indication: Dyspnoea
  7. BECONASE AQ [Concomitant]
     Active Substance: BECLOMETHASONE DIPROPIONATE MONOHYDRATE
     Indication: Catarrh

REACTIONS (24)
  - Coronary artery disease [Fatal]
  - Myocardial ischaemia [Fatal]
  - Hypertensive heart disease [Fatal]
  - Cardiac failure congestive [Fatal]
  - Hyponatraemia [Unknown]
  - Hypokalaemia [Unknown]
  - Anaemia [Unknown]
  - Gait disturbance [Unknown]
  - Confusional state [Unknown]
  - Dyspnoea [Unknown]
  - Dysarthria [Unknown]
  - Muscle spasms [Unknown]
  - Blood urine present [Unknown]
  - Cardiac failure acute [Unknown]
  - Multifocal motor neuropathy [Unknown]
  - Lower respiratory tract infection [Unknown]
  - Asthenia [Unknown]
  - Muscle atrophy [Unknown]
  - Muscular weakness [Unknown]
  - Weight decreased [Unknown]
  - Fatigue [Unknown]
  - Balance disorder [Unknown]
  - Blood sodium decreased [Unknown]
  - Blood potassium decreased [Unknown]

NARRATIVE: CASE EVENT DATE: 20090101
